FAERS Safety Report 6315154-X (Version None)
Quarter: 2009Q3

REPORT INFORMATION
  Report Type: 
  Country: None (occurrence: None)
  Receive Date: 20090819
  Receipt Date: 20090527
  Transmission Date: 20100115
  Serious: Yes (Hospitalization)
  Sender: FDA-Public Use
  Company Number: FR-JNJFOC-20090805694

PATIENT
  Age: 96 Year
  Sex: Female

DRUGS (11)
  1. IXPRIM [Suspect]
     Indication: DRUG USE FOR UNKNOWN INDICATION
     Route: 048
  2. EBIXA [Interacting]
     Indication: DRUG USE FOR UNKNOWN INDICATION
     Dosage: 10 MG TWICE DAILY
     Route: 048
  3. FUROSEMIDE [Interacting]
     Indication: DRUG USE FOR UNKNOWN INDICATION
     Route: 065
  4. VASTAREL [Interacting]
     Indication: DRUG USE FOR UNKNOWN INDICATION
     Dosage: 35 MG TWICE DAILY
     Route: 048
  5. ATARAX [Interacting]
     Indication: DRUG USE FOR UNKNOWN INDICATION
     Dosage: 12.5 MG TWICE DAILY
     Route: 048
  6. DIFFU K [Concomitant]
     Route: 065
  7. OGASTORO [Concomitant]
  8. FERROUS SULFATE, FOLIC ACID [Concomitant]
     Route: 065
  9. VITAMIN B-12 [Concomitant]
  10. FIXICAL VITAMINE D3 [Concomitant]
  11. SOLUPRED [Concomitant]

REACTIONS (2)
  - DRUG INTERACTION [None]
  - FALL [None]
